FAERS Safety Report 4466071-1 (Version None)
Quarter: 2004Q3

REPORT INFORMATION
  Report Type: 
  Country: None (occurrence: None)
  Receive Date: 20040930
  Receipt Date: 20040930
  Transmission Date: 20050211
  Serious: Yes (Disabling)
  Sender: FDA-Public Use
  Company Number: None

PATIENT
  Age: 75 Year
  Sex: Female
  Weight: 73.9363 kg

DRUGS (8)
  1. LEXAPRO [Suspect]
     Indication: BIPOLAR I DISORDER
     Dosage: 10 MG  DAILY  ORAL
     Route: 048
     Dates: start: 20040130, end: 20040715
  2. KCL TAB [Concomitant]
  3. CELEBREX [Concomitant]
  4. AMARYL [Concomitant]
  5. NIFEDIPINE [Concomitant]
  6. ZOCOR [Concomitant]
  7. TOPROL-XL [Concomitant]
  8. PLAVIX [Concomitant]

REACTIONS (1)
  - DYSTONIA [None]
